FAERS Safety Report 6672172-X (Version None)
Quarter: 2010Q2

REPORT INFORMATION
  Report Type: 
  Country: None (occurrence: None)
  Receive Date: 20100408
  Receipt Date: 20100324
  Transmission Date: 20101027
  Serious: Yes (Hospitalization)
  Sender: FDA-Public Use
  Company Number: US-BIOGENIDEC-2010BI009081

PATIENT
  Age: 27 Year
  Sex: Female
  Weight: 50 kg

DRUGS (9)
  1. TYSABRI [Suspect]
     Indication: CROHN'S DISEASE
     Route: 042
     Dates: start: 20090901, end: 20100210
  2. CIPRO [Concomitant]
     Indication: CROHN'S DISEASE
     Route: 048
     Dates: start: 20000615, end: 20100210
  3. PREVACID [Concomitant]
     Indication: ANTACID THERAPY
     Route: 048
     Dates: start: 20001215
  4. CYMBALTA [Concomitant]
     Indication: DEPRESSION
     Route: 048
     Dates: start: 20090815
  5. COLAZAL [Concomitant]
     Indication: CROHN'S DISEASE
     Route: 048
     Dates: start: 20000615, end: 20091224
  6. FLAGYL [Concomitant]
     Route: 048
     Dates: start: 20100210
  7. WELLBUTRIN [Concomitant]
     Indication: DEPRESSION
     Route: 048
     Dates: start: 20090815
  8. AMBIEN [Concomitant]
     Indication: SLEEP DISORDER
     Route: 048
     Dates: start: 20081215
  9. VITAMIN B-12 [Concomitant]
     Indication: CROHN'S DISEASE
     Route: 030
     Dates: start: 20090815

REACTIONS (2)
  - CROHN'S DISEASE [None]
  - FISTULA [None]
